FAERS Safety Report 13135936 (Version 10)
Quarter: 2017Q3

REPORT INFORMATION
  Report Type: Spontaneous
  Country: KR (occurrence: KR)
  Receive Date: 20170120
  Receipt Date: 20170912
  Transmission Date: 20171127
  Serious: Yes (Hospitalization, Other)
  Sender: FDA-Public Use
  Company Number: KR-009507513-1701KOR008622

PATIENT
  Age: 56 Year
  Sex: Female
  Weight: 52.8 kg

DRUGS (79)
  1. EMEND (FOSAPREPITANT DIMEGLUMINE) [Suspect]
     Active Substance: FOSAPREPITANT DIMEGLUMINE
     Dosage: 150 MG, ONCE
     Route: 042
     Dates: start: 20160722, end: 20160722
  2. LASIX [Concomitant]
     Active Substance: FUROSEMIDE
     Indication: PROPHYLAXIS
     Dosage: 20 MG, ONCE; STRENGTH: 20MG/2ML
     Route: 042
     Dates: start: 20160629, end: 20160629
  3. LASIX [Concomitant]
     Active Substance: FUROSEMIDE
     Dosage: 40 MG, QD; FROM 09-OCT-2016 TO 11-OCT-2016, 120 MG WAS ADMINISTRATED
     Dates: start: 20161008, end: 20161014
  4. MANNITOL. [Concomitant]
     Active Substance: MANNITOL
     Dosage: 100 ML, ONCE
     Route: 042
     Dates: start: 20160906, end: 20160906
  5. MEGACE [Concomitant]
     Active Substance: MEGESTROL ACETATE
     Indication: DECREASED APPETITE
     Dosage: 10 ML, QD
     Route: 048
     Dates: start: 20160622, end: 20160703
  6. FURIX [Concomitant]
     Active Substance: FUROSEMIDE
     Indication: PROPHYLAXIS
     Dosage: 40 MG(1 TABLET), QD
     Route: 048
     Dates: start: 20160625, end: 20160703
  7. ZIPAN (TRAMADOL HYDROCHLORIDE) [Concomitant]
     Indication: CANCER PAIN
     Dosage: 100 MG, QD; STRENGTH: 100MG/2ML; WAS ADMINISTRATED ON 20, 23, 25 JUN-2017 AND 07-JUL-2017
     Route: 042
     Dates: start: 20160627, end: 20160705
  8. MECKOOL [Concomitant]
     Dosage: 10 MG, ONCE
     Route: 042
     Dates: start: 20160812, end: 20160812
  9. CEFTRIAXONE SODIUM. [Concomitant]
     Active Substance: CEFTRIAXONE SODIUM
     Indication: INFECTION
     Dosage: 2 G, QD
     Route: 042
     Dates: start: 20160620
  10. DONG A GASTER [Concomitant]
     Indication: PROPHYLAXIS
     Dosage: 20 MG, BID; ON 29-JUN-2016, 20 MG IV WAS ADMINISTERED ONLY 1 TIME
     Route: 042
     Dates: start: 20160620, end: 20160621
  11. PANTOLINE INJECTION [Concomitant]
     Indication: PROPHYLAXIS
     Dosage: 40 MG, QD; FROM 28-JUN-2016 TO 03-JUL-2016, IT WAS NOT ADMINISTERED
     Route: 042
     Dates: start: 20160622
  12. PANTOLINE INJECTION [Concomitant]
     Dosage: 40 MG, QD
     Route: 042
     Dates: start: 20160708, end: 20160713
  13. CISPLATIN. [Concomitant]
     Active Substance: CISPLATIN
     Indication: ENDOMETRIAL ADENOCARCINOMA
     Dosage: 75 MG, ONCE, CYCLE 1; STRENGTH: 50MG/100ML
     Route: 042
     Dates: start: 20160629, end: 20160629
  14. ANZATAX (PACLITAXEL) [Concomitant]
     Active Substance: PACLITAXEL
     Indication: ENDOMETRIAL ADENOCARCINOMA
     Dosage: 202.5 MG, ONCE, CYCLE 1
     Route: 042
     Dates: start: 20160629, end: 20160629
  15. DEXAMETHASONE SODIUM PHOSPHATE. [Concomitant]
     Active Substance: DEXAMETHASONE SODIUM PHOSPHATE
     Dosage: 20 MG, ONCE
     Route: 042
     Dates: start: 20160722, end: 20160722
  16. DEXAMETHASONE. [Concomitant]
     Active Substance: DEXAMETHASONE
     Dosage: 3.75 MG, BID
     Route: 048
     Dates: start: 20161223, end: 20161225
  17. ALOXI [Concomitant]
     Active Substance: PALONOSETRON HYDROCHLORIDE
     Dosage: 0.25 MG, ONCE
     Route: 042
     Dates: start: 20160812, end: 20160812
  18. ALOXI [Concomitant]
     Active Substance: PALONOSETRON HYDROCHLORIDE
     Dosage: 0.25 MG, ONCE
     Route: 042
     Dates: start: 20160930, end: 20160930
  19. LASIX [Concomitant]
     Active Substance: FUROSEMIDE
     Dosage: 20 MG, ONCE; STRENGTH: 20MG/2ML
     Route: 042
     Dates: start: 20160930, end: 20160930
  20. LASIX [Concomitant]
     Active Substance: FUROSEMIDE
     Dosage: 20 MG, ONCE; STRENGTH: 20MG/2ML
     Route: 042
     Dates: start: 20161222, end: 20161222
  21. MANNITOL. [Concomitant]
     Active Substance: MANNITOL
     Dosage: 100 ML, ONCE
     Route: 042
     Dates: start: 20160722, end: 20160722
  22. ULCERMIN COMP [Concomitant]
     Indication: DYSPEPSIA
     Dosage: 1 DF, QID; FROM 04-JUL-2016 TO 12-JUL-2016, IT WAS NOT ADMINISTERED
     Route: 048
     Dates: start: 20160621
  23. ALGIRON [Concomitant]
     Active Substance: CIMETROPIUM BROMIDE
     Indication: PROPHYLAXIS
     Dosage: 5 MG, ONCE
     Route: 042
     Dates: start: 20160628, end: 20160628
  24. EMEND (FOSAPREPITANT DIMEGLUMINE) [Suspect]
     Active Substance: FOSAPREPITANT DIMEGLUMINE
     Dosage: 150 MG, ONCE
     Route: 042
     Dates: start: 20160906, end: 20160906
  25. CISPLATIN. [Concomitant]
     Active Substance: CISPLATIN
     Dosage: 75 MG, ONCE, CYCLE 3; STRENGTH: 50MG/100ML
     Route: 042
     Dates: start: 20160812, end: 20160812
  26. ANZATAX (PACLITAXEL) [Concomitant]
     Active Substance: PACLITAXEL
     Dosage: 203.85 MG, ONCE, CYCLE 2
     Route: 042
     Dates: start: 20160722, end: 20160722
  27. ANZATAX (PACLITAXEL) [Concomitant]
     Active Substance: PACLITAXEL
     Dosage: 206.55 MG, ONCE, CYCLE 4
     Route: 042
     Dates: start: 20160906, end: 20160906
  28. DEXAMETHASONE SODIUM PHOSPHATE. [Concomitant]
     Active Substance: DEXAMETHASONE SODIUM PHOSPHATE
     Indication: PROPHYLAXIS OF NAUSEA AND VOMITING
     Dosage: 20 MG, ONCE
     Route: 042
     Dates: start: 20160629, end: 20160629
  29. DEXAMETHASONE SODIUM PHOSPHATE. [Concomitant]
     Active Substance: DEXAMETHASONE SODIUM PHOSPHATE
     Dosage: 20 MG, ONCE
     Route: 042
     Dates: start: 20160906, end: 20160906
  30. DEXAMETHASONE SODIUM PHOSPHATE. [Concomitant]
     Active Substance: DEXAMETHASONE SODIUM PHOSPHATE
     Dosage: 20 MG, ONCE
     Route: 042
     Dates: start: 20160930, end: 20160930
  31. DEXAMETHASONE. [Concomitant]
     Active Substance: DEXAMETHASONE
     Indication: PROPHYLAXIS OF NAUSEA AND VOMITING
     Dosage: 3.75 MG, BID
     Route: 048
     Dates: start: 20160630, end: 20160702
  32. DEXAMETHASONE. [Concomitant]
     Active Substance: DEXAMETHASONE
     Dosage: 3.75 MG, BID
     Route: 048
     Dates: start: 20160907, end: 20160908
  33. LASIX [Concomitant]
     Active Substance: FUROSEMIDE
     Indication: DYSURIA
     Dosage: 20 MG, ONCE; STRENGTH: 20MG/2ML
     Route: 042
     Dates: start: 20160722, end: 20160722
  34. MANNITOL. [Concomitant]
     Active Substance: MANNITOL
     Indication: PROPHYLAXIS
     Dosage: 100 ML, ONCE
     Route: 042
     Dates: start: 20160629, end: 20160629
  35. MANNITOL. [Concomitant]
     Active Substance: MANNITOL
     Dosage: 100 ML, ONCE
     Route: 042
     Dates: start: 20161222, end: 20161222
  36. ALLEGRA-D [Concomitant]
     Active Substance: FEXOFENADINE\PSEUDOEPHEDRINE
     Indication: PROPHYLAXIS
     Dosage: 1 TABLET, QD
     Route: 048
     Dates: start: 20160622, end: 20160703
  37. DUPHALAC [Concomitant]
     Active Substance: LACTULOSE
     Indication: CONSTIPATION PROPHYLAXIS
     Dosage: 15 ML, QD; FROM 04-JUL-2016 TO 08-JUL-2016, IT WAS NOT ADMINISTRATED
     Route: 048
     Dates: start: 20160624
  38. STILNOX [Concomitant]
     Active Substance: ZOLPIDEM TARTRATE
     Indication: DEPRESSION
     Dosage: 5 MG, QD; ON 04-JUL-2016, IT WAS NOT ADMINISTRATED
     Route: 048
     Dates: start: 20160626
  39. ATROPINE SULFATE. [Concomitant]
     Active Substance: ATROPINE SULFATE
     Indication: PROPHYLAXIS
     Dosage: 0.5 MG, QD; STRENGTH: 0.5 MG/ML; ON 20-JUN-2017, WAS ADMINISTERED 0.5 MG, IV, ONE TIME
     Route: 042
     Dates: start: 20160627, end: 20160630
  40. CHLORPHENIRAMINE. [Concomitant]
     Active Substance: CHLORPHENIRAMINE
     Indication: ALLERGY PROPHYLAXIS
     Dosage: 4 MG, QD; STRENGTH: 4MG/2ML/AMP
     Route: 042
     Dates: start: 20160629, end: 20160630
  41. ALBUMIN HUMAN [Concomitant]
     Active Substance: ALBUMIN HUMAN
     Indication: PROPHYLAXIS
     Dosage: 100 ML, ONCE; ON 27-JUN-2016, 04 AND 09-JUL-2016, WAS ADMINISTERED 1 TIME
     Route: 042
     Dates: start: 20160623, end: 20160623
  42. ALOXI [Concomitant]
     Active Substance: PALONOSETRON HYDROCHLORIDE
     Dosage: 0.25 MG, ONCE
     Route: 042
     Dates: start: 20160722, end: 20160722
  43. MECKOOL [Concomitant]
     Dosage: 10 MG, QD; ON 10-JUL-2016, IT WAS NOT ADMINISTERED
     Route: 042
     Dates: start: 20160709, end: 20160711
  44. EMEND (FOSAPREPITANT DIMEGLUMINE) [Suspect]
     Active Substance: FOSAPREPITANT DIMEGLUMINE
     Dosage: 150 MG, ONCE
     Route: 042
     Dates: start: 20160812, end: 20160812
  45. EMEND (FOSAPREPITANT DIMEGLUMINE) [Suspect]
     Active Substance: FOSAPREPITANT DIMEGLUMINE
     Dosage: 150 MG, ONCE
     Route: 042
     Dates: start: 20160930, end: 20160930
  46. EMEND (FOSAPREPITANT DIMEGLUMINE) [Suspect]
     Active Substance: FOSAPREPITANT DIMEGLUMINE
     Dosage: 150 MG, ONCE
     Route: 042
     Dates: start: 20161222, end: 20161222
  47. CISPLATIN. [Concomitant]
     Active Substance: CISPLATIN
     Dosage: 97.2 MG, ONCE, CYCLE 6; STRENGTH: 50MG/100ML
     Route: 042
     Dates: start: 20161222, end: 20161222
  48. ANZATAX (PACLITAXEL) [Concomitant]
     Active Substance: PACLITAXEL
     Dosage: 216 MG, ONCE, CYCLE 5
     Route: 042
     Dates: start: 20160930, end: 20160930
  49. DEXAMETHASONE. [Concomitant]
     Active Substance: DEXAMETHASONE
     Dosage: 3.75 MG, BID
     Route: 048
     Dates: start: 20161001, end: 20161003
  50. ALOXI [Concomitant]
     Active Substance: PALONOSETRON HYDROCHLORIDE
     Dosage: 0.25 MG, ONCE
     Route: 042
     Dates: start: 20160906, end: 20160906
  51. TYLENOL EXTENDED RELIEF CAPLETS [Concomitant]
     Active Substance: ACETAMINOPHEN
     Indication: CANCER PAIN
     Dosage: 650 MG(1 TABLET), QD
     Route: 048
     Dates: start: 20160623, end: 20160630
  52. ZIPAN (TRAMADOL HYDROCHLORIDE) [Concomitant]
     Dosage: 100 MG, ONCE; STRENGTH: 100MG/2ML
     Route: 042
     Dates: start: 20161225, end: 20161225
  53. ANZATAX (PACLITAXEL) [Concomitant]
     Active Substance: PACLITAXEL
     Dosage: 202.5 MG, ONCE, CYCLE 3
     Route: 042
     Dates: start: 20160812, end: 20160812
  54. DEXAMETHASONE SODIUM PHOSPHATE. [Concomitant]
     Active Substance: DEXAMETHASONE SODIUM PHOSPHATE
     Dosage: 20 MG, ONCE
     Route: 042
     Dates: start: 20160812, end: 20160812
  55. DEXAMETHASONE SODIUM PHOSPHATE. [Concomitant]
     Active Substance: DEXAMETHASONE SODIUM PHOSPHATE
     Dosage: 10 MG, ONCE
     Route: 042
     Dates: start: 20161222, end: 20161222
  56. ALOXI [Concomitant]
     Active Substance: PALONOSETRON HYDROCHLORIDE
     Indication: PROPHYLAXIS OF NAUSEA AND VOMITING
     Dosage: 0.25 MG, ONCE
     Route: 042
     Dates: start: 20160629, end: 20160629
  57. ALOXI [Concomitant]
     Active Substance: PALONOSETRON HYDROCHLORIDE
     Dosage: 0.25 MG, ONCE
     Route: 042
     Dates: start: 20161222, end: 20161222
  58. LASIX [Concomitant]
     Active Substance: FUROSEMIDE
     Dosage: 20 MG, ONCE; STRENGTH: 20MG/2ML
     Route: 042
     Dates: start: 20160812, end: 20160812
  59. SODIUM ALGINATE [Concomitant]
     Active Substance: SODIUM ALGINATE
     Indication: PROPHYLAXIS
     Dosage: 20 ML, ONCE
     Route: 048
     Dates: start: 20160701, end: 20160701
  60. ALDACTONE [Concomitant]
     Active Substance: SPIRONOLACTONE
     Indication: PROPHYLAXIS
     Dosage: 50 MG(2 TABLETS), QD
     Route: 048
     Dates: start: 20160626, end: 20160703
  61. ZIPAN (TRAMADOL HYDROCHLORIDE) [Concomitant]
     Dosage: 100 MG, QD; STRENGTH: 100MG/2ML
     Route: 042
     Dates: start: 20160813, end: 20160815
  62. CRAVIT [Concomitant]
     Active Substance: LEVOFLOXACIN
     Indication: INFECTION PROPHYLAXIS
     Dosage: 100 ML, QD; STRENGTH: 500MG/100ML
     Route: 042
     Dates: start: 20160623, end: 20160701
  63. EMEND (FOSAPREPITANT DIMEGLUMINE) [Suspect]
     Active Substance: FOSAPREPITANT DIMEGLUMINE
     Indication: PROPHYLAXIS OF NAUSEA AND VOMITING
     Dosage: 150 MG, ONCE
     Route: 042
     Dates: start: 20160629, end: 20160629
  64. CISPLATIN. [Concomitant]
     Active Substance: CISPLATIN
     Dosage: 75.5 MG, ONCE, CYCLE 2; STRENGTH: 50MG/100ML
     Route: 042
     Dates: start: 20160722, end: 20160722
  65. CISPLATIN. [Concomitant]
     Active Substance: CISPLATIN
     Dosage: 76.5 MG, ONCE, CYCLE 4; STRENGTH: 50MG/100ML
     Route: 042
     Dates: start: 20160906, end: 20160906
  66. CISPLATIN. [Concomitant]
     Active Substance: CISPLATIN
     Dosage: 80 MG, ONCE, CYCLE 5; STRENGTH: 50MG/100ML
     Route: 042
     Dates: start: 20160930, end: 20160930
  67. DEXAMETHASONE. [Concomitant]
     Active Substance: DEXAMETHASONE
     Dosage: 3.75 MG, BID
     Route: 048
     Dates: start: 20160723, end: 20160725
  68. DEXAMETHASONE. [Concomitant]
     Active Substance: DEXAMETHASONE
     Dosage: 3.75 MG, BID
     Route: 048
     Dates: start: 20160813, end: 20160814
  69. LASIX [Concomitant]
     Active Substance: FUROSEMIDE
     Dosage: 20 MG, ONCE; STRENGTH: 20MG/2ML
     Route: 042
     Dates: start: 20160906, end: 20160906
  70. MANNITOL. [Concomitant]
     Active Substance: MANNITOL
     Dosage: 100 ML, ONCE
     Route: 042
     Dates: start: 20160930, end: 20160930
  71. STILNOX [Concomitant]
     Active Substance: ZOLPIDEM TARTRATE
     Dosage: 5 MG, QD
     Route: 048
     Dates: start: 20160824
  72. DONG A GASTER [Concomitant]
     Indication: DYSPEPSIA
  73. MANNITOL. [Concomitant]
     Active Substance: MANNITOL
     Dosage: 100 ML, ONCE
     Route: 042
     Dates: start: 20160812, end: 20160812
  74. BESZYME [Concomitant]
     Indication: PROPHYLAXIS
     Dosage: 1 TABLET, TID; FROM 04-JUL-2016 TO 07-JUL-2016, IT WAS NOT ADMINISTERED
     Route: 048
     Dates: start: 20160621
  75. WELLCON [Concomitant]
     Indication: CONSTIPATION PROPHYLAXIS
     Dosage: 1 TABLET, QD; ON 25-JUN-2016, 2 TABLETS WERE ADMINISTRATED
     Route: 048
     Dates: start: 20160624, end: 20160703
  76. LANSTON [Concomitant]
     Active Substance: LANSOPRAZOLE
     Indication: PROPHYLAXIS
     Dosage: 15 MG(1 TABLET), QD; FROM 04-JUL-2016 TO 12-JUL-2016, IT WAS NOT ADMINISTERED
     Route: 048
     Dates: start: 20160628
  77. ZIPAN (TRAMADOL HYDROCHLORIDE) [Concomitant]
     Dosage: 100 MG, QD;  STRENGTH: 100MG/2ML; WAS ADMINISTERED ON 12 AND 14-OCT-2016
     Route: 042
     Dates: start: 20160930, end: 20161004
  78. MECKOOL [Concomitant]
     Indication: PROPHYLAXIS OF NAUSEA AND VOMITING
     Dosage: 10 MG, ONCE; STRENGTH: 4.231 MG/ML; ADMINISTERED IN 06, 09 AND 11-JUL-2016
     Route: 042
     Dates: start: 20160622, end: 20160622
  79. MEPERIDINE HYDROCHLORIDE. [Concomitant]
     Active Substance: MEPERIDINE HYDROCHLORIDE
     Indication: CANCER PAIN
     Dosage: 50 MG, ONCE; STRENGTH: 50 MG/ML
     Route: 042
     Dates: start: 20160628, end: 20160628

REACTIONS (8)
  - Deep vein thrombosis [Recovered/Resolved]
  - C-reactive protein increased [Recovered/Resolved]
  - Neck pain [Recovered/Resolved]
  - Oral candidiasis [Recovered/Resolved]
  - Dyspepsia [Recovered/Resolved]
  - Diarrhoea [Recovered/Resolved]
  - Headache [Recovered/Resolved]
  - Febrile neutropenia [Recovered/Resolved]

NARRATIVE: CASE EVENT DATE: 20160701
